FAERS Safety Report 9161372 (Version 1)
Quarter: 2013Q1

REPORT INFORMATION
  Report Type: Spontaneous
  Country: US (occurrence: US)
  Receive Date: 20130313
  Receipt Date: 20130313
  Transmission Date: 20140127
  Serious: No
  Sender: FDA-Public Use
  Company Number: US-009507513-1303USA005698

PATIENT
  Sex: Male

DRUGS (1)
  1. INTRONA [Suspect]

REACTIONS (1)
  - Blood triglycerides abnormal [Unknown]
